FAERS Safety Report 20318690 (Version 1)
Quarter: 2022Q1

REPORT INFORMATION
  Report Type: Spontaneous
  Country: US (occurrence: None)
  Receive Date: 20220109
  Receipt Date: 20220109
  Transmission Date: 20220423
  Serious: Yes (Life-Threatening)
  Sender: FDA-Public Use
  Company Number: None

PATIENT
  Age: 29 Year
  Sex: Female
  Weight: 67.5 kg

DRUGS (1)
  1. AMPHETAMINE\DEXTROAMPHETAMINE [Suspect]
     Active Substance: AMPHETAMINE\DEXTROAMPHETAMINE
     Indication: Attention deficit hyperactivity disorder
     Dosage: FREQUENCY : TWICE A DAY;?
     Route: 048
     Dates: start: 20200201, end: 20200201

REACTIONS (9)
  - Product substitution issue [None]
  - Feeling hot [None]
  - Pruritus [None]
  - Swelling face [None]
  - Erythema [None]
  - Generalised oedema [None]
  - Urticaria [None]
  - Throat tightness [None]
  - Salivary hypersecretion [None]

NARRATIVE: CASE EVENT DATE: 20200201
